FAERS Safety Report 24869984 (Version 1)
Quarter: 2025Q1

REPORT INFORMATION
  Report Type: Spontaneous
  Country: IE (occurrence: IE)
  Receive Date: 20250121
  Receipt Date: 20250121
  Transmission Date: 20250409
  Serious: Yes (Other)
  Sender: FRESENIUS KABI
  Company Number: None

PATIENT
  Age: 56 Year
  Sex: Female
  Weight: 80 kg

DRUGS (4)
  1. TYENNE [Suspect]
     Active Substance: TOCILIZUMAB-AAZG
     Indication: Tumour necrosis factor receptor-associated periodic syndrome
     Dosage: DOSE 2 7MG/KG 4 WEEKLY?FOA-CONCENTRATE FOR SOLUTION FOR INFUSION
     Route: 042
     Dates: start: 20241223, end: 20241223
  2. HYDROCORTISONE (GENERIC) [Concomitant]
     Indication: Product used for unknown indication
     Route: 042
     Dates: start: 20241223, end: 20241223
  3. HYDROCORTISONE (GENERIC) [Concomitant]
     Route: 042
     Dates: start: 20241223, end: 20241223
  4. CETIRIZINE (G) [Concomitant]
     Indication: Product used for unknown indication
     Route: 048
     Dates: start: 20241223, end: 20241223

REACTIONS (4)
  - Palpitations [Recovered/Resolved]
  - Pruritus [Recovered/Resolved]
  - Rash [Recovered/Resolved]
  - Throat tightness [Recovered/Resolved]

NARRATIVE: CASE EVENT DATE: 20241223
